FAERS Safety Report 7203589-2 (Version None)
Quarter: 2010Q4

REPORT INFORMATION
  Report Type: 
  Country: None (occurrence: None)
  Receive Date: 20101230
  Receipt Date: 20101227
  Transmission Date: 20110411
  Serious: Yes (Other)
  Sender: FDA-Public Use
  Company Number: US-ENDO PHARMACEUTICALS INC.-OPER20100231

PATIENT
  Sex: Female

DRUGS (1)
  1. OPANA ER [Suspect]
     Route: 048

REACTIONS (2)
  - DRUG DEPENDENCE [None]
  - DRUG SCREEN NEGATIVE [None]
